FAERS Safety Report 8988780 (Version 1)
Quarter: 2012Q4

REPORT INFORMATION
  Report Type: Report from Study
  Country: PL (occurrence: PL)
  Receive Date: 20121228
  Receipt Date: 20121228
  Transmission Date: 20130627
  Serious: Yes (Death, Other)
  Sender: FDA-Public Use
  Company Number: PL-ROCHE-1170312

PATIENT
  Sex: Male

DRUGS (1)
  1. RITUXIMAB [Suspect]
     Indication: PRODUCT USED FOR UNKNOWN INDICATION
     Route: 065

REACTIONS (21)
  - Hepatic failure [Unknown]
  - Ascites [Unknown]
  - Hepatic encephalopathy [Unknown]
  - Pulmonary tuberculosis [Unknown]
  - Disease progression [Unknown]
  - Respiratory tract infection [Unknown]
  - Abdominal pain [Unknown]
  - Transaminases increased [Unknown]
  - Gamma-glutamyltransferase increased [Unknown]
  - Blood alkaline phosphatase increased [Unknown]
  - Pyrexia [Unknown]
  - Bronchitis bacterial [Unknown]
  - General physical health deterioration [Unknown]
  - Infection [Fatal]
  - Hypogammaglobulinaemia [Unknown]
  - Hepatomegaly [Unknown]
  - Hepatic steatosis [Unknown]
  - Cholecystitis [Unknown]
  - Inguinal hernia [Unknown]
  - Blood glucose increased [Unknown]
  - Haemoptysis [Unknown]
